FAERS Safety Report 24593655 (Version 1)
Quarter: 2024Q4

REPORT INFORMATION
  Report Type: Report from Study
  Country: US (occurrence: US)
  Receive Date: 20241108
  Receipt Date: 20241108
  Transmission Date: 20250114
  Serious: Yes (Hospitalization)
  Sender: EISAI
  Company Number: US-Eisai-EC-2024-178231

PATIENT
  Age: 59 Year
  Sex: Male
  Weight: 63.9 kg

DRUGS (11)
  1. LENVIMA [Suspect]
     Active Substance: LENVATINIB
     Indication: Hepatic cancer
     Route: 048
     Dates: start: 20240803, end: 2024
  2. LENVIMA [Suspect]
     Active Substance: LENVATINIB
     Dosage: SOMETIMES DECIDES TO ONLY TAKE 2 CAPSULES INSTEAD OF THE 3
     Route: 048
     Dates: start: 2024, end: 2024
  3. LENVIMA [Suspect]
     Active Substance: LENVATINIB
     Route: 048
     Dates: start: 2024, end: 2024
  4. URSODIOL [Concomitant]
     Active Substance: URSODIOL
     Dosage: DOSE AND FREQUENCY UNKNOWN
  5. VIREAD [Concomitant]
     Active Substance: TENOFOVIR DISOPROXIL FUMARATE
     Dosage: DOSE AND FREQUENCY UNKNOWN
  6. FERROUS SULFATE [Concomitant]
     Active Substance: FERROUS SULFATE
     Dosage: DOSE AND FREQUENCY UNKNOWN
  7. HERBALS\TURMERIC [Concomitant]
     Active Substance: HERBALS\TURMERIC
     Dosage: DOSE AND FREQUENCY UNKNOWN
  8. VITAMINS [Concomitant]
     Active Substance: VITAMINS
     Dosage: DOSE AND FREQUENCY UNKNOWN
  9. LASIX [Concomitant]
     Active Substance: FUROSEMIDE
     Dosage: DOSE AND FREQUENCY UNKNOWN
  10. LEVOTHYROXINE [Concomitant]
     Active Substance: LEVOTHYROXINE
     Dosage: DOSE AND FREQUENCY UNKNOWN
  11. NEXAVAR [Concomitant]
     Active Substance: SORAFENIB
     Dosage: DOSE AND FREQUENCY UNKNOWN

REACTIONS (1)
  - Pneumonia [Unknown]

NARRATIVE: CASE EVENT DATE: 20241001
